FAERS Safety Report 12817842 (Version 1)
Quarter: 2016Q4

REPORT INFORMATION
  Report Type: Spontaneous
  Country: NL (occurrence: NL)
  Receive Date: 20161006
  Receipt Date: 20161006
  Transmission Date: 20170207
  Serious: Yes (Hospitalization)
  Sender: FDA-Public Use
  Company Number: NL-SUN PHARMACEUTICAL INDUSTRIES LTD-2016RR-125186

PATIENT
  Sex: Male

DRUGS (8)
  1. ONBREZ BREEZHALER INHALPDR 300MCG MET BREEZHALER [Concomitant]
     Indication: PRODUCT USED FOR UNKNOWN INDICATION
     Dosage: DOSERING NIET BEKEND
     Route: 055
     Dates: start: 201207
  2. SPIRIVA RESPIMAT OPL V INHAL 2,5MCG/DO PATR 60DO [Concomitant]
     Indication: PRODUCT USED FOR UNKNOWN INDICATION
     Dosage: STARTDATUM EN DOSERING NIET BEKEND
     Route: 055
     Dates: start: 201207
  3. EMSELEX TABLET MVA  7,5MG [Concomitant]
     Indication: PRODUCT USED FOR UNKNOWN INDICATION
     Dosage: STARTDATUM EN DOSERING NIET BEKEND
     Route: 048
  4. AVODART [Concomitant]
     Active Substance: DUTASTERIDE
     Indication: PRODUCT USED FOR UNKNOWN INDICATION
     Dosage: STARTDATUM EN DOSERING NIET BEKEND
     Route: 048
  5. FENPROCOUMON TABLET 3MG [Concomitant]
     Active Substance: PHENPROCOUMON
     Indication: PRODUCT USED FOR UNKNOWN INDICATION
     Dosage: STARTDATUM EN DOSERING NIET BEKEND
     Route: 048
  6. SALBUTAMOL 100 REDIHALER 100MCG/DO SPB 200D+INH [Concomitant]
     Indication: PRODUCT USED FOR UNKNOWN INDICATION
     Dosage: STARTDATUM EN DOSERING NIET BEKEND
     Route: 055
     Dates: start: 201207
  7. TAMSULOSINE 0.4 RANBAXY CAPSULE MET VERLENGDE AFGIFTE 0.4 MG [Suspect]
     Active Substance: TAMSULOSIN
     Indication: MICTURITION DISORDER
     Dosage: 1 KEER PER DAG 1 STUK(S)
     Route: 048
     Dates: start: 201109
  8. OXIS TURBUHALER INHALPDR 12MCG/DO 60DO [Concomitant]
     Indication: PRODUCT USED FOR UNKNOWN INDICATION
     Dosage: STARTDATUM EN DOSERING NIET BEKEND
     Route: 055

REACTIONS (2)
  - Floppy iris syndrome [Recovered/Resolved]
  - Treatment failure [Recovered/Resolved]

NARRATIVE: CASE EVENT DATE: 2012
